FAERS Safety Report 11198604 (Version 1)
Quarter: 2015Q2

REPORT INFORMATION
  Report Type: Spontaneous
  Country: US (occurrence: US)
  Receive Date: 20150618
  Receipt Date: 20150618
  Transmission Date: 20150821
  Serious: Yes (Other)
  Sender: FDA-Public Use
  Company Number: US-AMGEN-USASP2015058802

PATIENT
  Age: 86 Year
  Sex: Female

DRUGS (1)
  1. ENBREL [Suspect]
     Active Substance: ETANERCEPT
     Indication: RHEUMATOID ARTHRITIS
     Dosage: UNK
     Route: 065
     Dates: start: 2004

REACTIONS (4)
  - Glaucoma [Recovered/Resolved]
  - Visual impairment [Not Recovered/Not Resolved]
  - Nasopharyngitis [Unknown]
  - Perineal ulceration [Recovered/Resolved]

NARRATIVE: CASE EVENT DATE: 2015
